FAERS Safety Report 5312330-X (Version None)
Quarter: 2007Q2

REPORT INFORMATION
  Report Type: 
  Country: None (occurrence: None)
  Receive Date: 20070430
  Receipt Date: 20070426
  Transmission Date: 20071010
  Serious: Yes (Other)
  Sender: FDA-Public Use
  Company Number: 2007AP02511

PATIENT
  Age: 60 Year
  Sex: Male

DRUGS (3)
  1. PULMICORT [Suspect]
     Indication: ASTHMA
     Route: 055
     Dates: start: 20070413, end: 20070413
  2. THEOLONG [Concomitant]
     Indication: ASTHMA
     Route: 048
  3. HOKUNALIN [Concomitant]
     Indication: ASTHMA

REACTIONS (1)
  - ASTHMA [None]
